FAERS Safety Report 15042022 (Version 1)
Quarter: 2018Q2

REPORT INFORMATION
  Report Type: Spontaneous
  Country: US (occurrence: US)
  Receive Date: 20180621
  Receipt Date: 20180621
  Transmission Date: 20180711
  Serious: Yes (Other)
  Sender: FDA-Public Use
  Company Number: US-BAYER-2018-111574

PATIENT
  Age: 77 Year
  Sex: Male
  Weight: 84 kg

DRUGS (1)
  1. MIRALAX [Suspect]
     Active Substance: POLYETHYLENE GLYCOL 3350
     Indication: GASTROINTESTINAL DISORDER
     Dosage: 1 DF, QD
     Route: 048

REACTIONS (5)
  - Product use in unapproved indication [Recovered/Resolved]
  - Cholecystectomy [None]
  - Malaise [Unknown]
  - Feeling hot [Recovered/Resolved]
  - Incorrect dosage administered [None]

NARRATIVE: CASE EVENT DATE: 201803
